FAERS Safety Report 24439933 (Version 3)
Quarter: 2025Q2

REPORT INFORMATION
  Report Type: Report from Study
  Country: UY (occurrence: UY)
  Receive Date: 20241015
  Receipt Date: 20250401
  Transmission Date: 20250717
  Serious: Yes (Hospitalization, Other)
  Sender: ABBVIE
  Company Number: UY-ABBVIE-5959779

PATIENT
  Age: 48 Year
  Sex: Female

DRUGS (2)
  1. RINVOQ [Suspect]
     Active Substance: UPADACITINIB
     Indication: Ankylosing spondylitis
     Dosage: FORM STRENGTH:15 MILLIGRAM/DOSE INCREASED/MODIFIED-RELEASE FILM-COATED TABLET?RINVOQ 15MG X 30 TA...
     Route: 048
  2. RINVOQ [Suspect]
     Active Substance: UPADACITINIB
     Indication: Ankylosing spondylitis
     Dosage: FORM STRENGTH:15 MILLIGRAM/MODIFIED-RELEASE FILM-COATED TABLET
     Route: 048
     Dates: start: 20240504, end: 202409

REACTIONS (18)
  - Urinary tract infection [Recovered/Resolved]
  - Blood potassium decreased [Unknown]
  - Cystitis [Unknown]
  - Vitamin D decreased [Unknown]
  - Inflammation [Unknown]
  - Investigation abnormal [Unknown]
  - Productive cough [Unknown]
  - Musculoskeletal stiffness [Unknown]
  - Joint stiffness [Unknown]
  - Blood urine present [Unknown]
  - Kidney infection [Unknown]
  - Influenza [Unknown]
  - Secretion discharge [Unknown]
  - Pain [Unknown]
  - Swelling [Unknown]
  - Peripheral swelling [Unknown]
  - Joint swelling [Unknown]
  - Immunodeficiency [Unknown]

NARRATIVE: CASE EVENT DATE: 20240901
